FAERS Safety Report 10217203 (Version 1)
Quarter: 2014Q2

REPORT INFORMATION
  Report Type: Spontaneous
  Country: SE (occurrence: SE)
  Receive Date: 20140604
  Receipt Date: 20140604
  Transmission Date: 20141212
  Serious: Yes (Other)
  Sender: FDA-Public Use
  Company Number: SE-MYLANLABS-2014S1012327

PATIENT
  Age: 44 Year
  Sex: Female

DRUGS (1)
  1. FLUCONAZOLE [Suspect]
     Indication: GENITAL INFECTION FUNGAL
     Dates: end: 20130123

REACTIONS (2)
  - Abortion spontaneous [Unknown]
  - Migraine [Unknown]
